FAERS Safety Report 4417529-2 (Version None)
Quarter: 2004Q2

REPORT INFORMATION
  Report Type: 
  Country: None (occurrence: None)
  Receive Date: 20040625
  Receipt Date: 20040428
  Transmission Date: 20050107
  Serious: No
  Sender: FDA-Public Use
  Company Number: 206206

PATIENT
  Age: 61 Year
  Sex: Female

DRUGS (15)
  1. AVASTIN [Suspect]
     Indication: COLORECTAL CANCER
     Dosage: 5 MG/KG, Q2W, INTRAVENOUS
     Route: 042
     Dates: start: 20040414
  2. OXALIPLATIN (OXALIPLATIN) [Concomitant]
  3. FLUOROURACIL [Concomitant]
  4. LEUCOVORIN CALCIUM [Concomitant]
  5. ZOFRAN [Concomitant]
  6. DECADRON [Concomitant]
  7. MYSOLINE [Concomitant]
  8. IMODIUIM (LOPERAMIDE HYDROCHLORIDE) [Concomitant]
  9. FLONASE NASAL SPRAY (FLUTICASONE PROPINOATE) [Concomitant]
  10. SEREVENT [Concomitant]
  11. ALLEGRA [Concomitant]
  12. ACPHEX (RABEPRAZOLE) [Concomitant]
  13. TYLENOL PM (ACETAMINOPHEN, DIPHENHYDRAMINE HYDROCHLORIDE) [Concomitant]
  14. COUMADIN [Concomitant]
  15. SYNTHROID [Concomitant]

REACTIONS (2)
  - HEADACHE [None]
  - HYPERTENSION [None]
